FAERS Safety Report 6296267-8 (Version None)
Quarter: 2009Q3

REPORT INFORMATION
  Report Type: 
  Country: None (occurrence: None)
  Receive Date: 20090803
  Receipt Date: 20090803
  Transmission Date: 20100115
  Serious: Yes (Hospitalization)
  Sender: FDA-Public Use
  Company Number: None

PATIENT
  Age: 63 Year
  Sex: Female
  Weight: 63.9572 kg

DRUGS (1)
  1. LEVAQUIN [Suspect]
     Indication: URINARY TRACT INFECTION
     Dosage: 1 TABLET A DAY
     Dates: start: 20070907, end: 20070917

REACTIONS (4)
  - BLOOD AMYLASE INCREASED [None]
  - NEPHROPATHY [None]
  - PANCREATITIS ACUTE [None]
  - RENAL INJURY [None]
